FAERS Safety Report 23274349 (Version 1)
Quarter: 2023Q4

REPORT INFORMATION
  Report Type: Spontaneous
  Country: US (occurrence: US)
  Receive Date: 20231208
  Receipt Date: 20231208
  Transmission Date: 20240110
  Serious: No
  Sender: FDA-Public Use
  Company Number: US-AUROBINDO-AUR-APL-2023-062632

PATIENT
  Age: 65 Year
  Sex: Female
  Weight: 69 kg

DRUGS (1)
  1. PROGESTERONE [Suspect]
     Active Substance: PROGESTERONE
     Indication: Product used for unknown indication
     Dosage: UNK UNK, DAILY
     Route: 048
     Dates: end: 202303

REACTIONS (4)
  - Adverse drug reaction [Unknown]
  - Nervousness [Unknown]
  - Palpitations [Unknown]
  - Insomnia [Unknown]
